FAERS Safety Report 8710245 (Version 3)
Quarter: 2013Q4

REPORT INFORMATION
  Report Type: Spontaneous
  Country: US (occurrence: US)
  Receive Date: 20120807
  Receipt Date: 20131105
  Transmission Date: 20140711
  Serious: Yes (Disabling)
  Sender: FDA-Public Use
  Company Number: US-009507513-1208USA000553

PATIENT
  Sex: Male

DRUGS (6)
  1. PRINZIDE [Suspect]
     Indication: HYPERTENSION
     Dosage: 10-12.5 MG, QD
     Route: 048
     Dates: start: 20120524
  2. IBUPROFEN [Concomitant]
     Indication: PAIN
     Dosage: 400 MG, Q6H
     Route: 048
     Dates: start: 20120524
  3. CYMBALTA [Concomitant]
     Indication: FIBROMYALGIA
     Dosage: 60 MG, QD
     Dates: start: 20120524
  4. NEURONTIN [Concomitant]
     Indication: FIBROMYALGIA
     Dosage: 100 MG, TID
     Route: 048
     Dates: start: 20120524
  5. CLARITINE [Concomitant]
  6. DIOVAN [Concomitant]

REACTIONS (4)
  - Pain [Unknown]
  - Disability [Unknown]
  - Sinusitis [Unknown]
  - Fibromyalgia [Unknown]
